FAERS Safety Report 14271360 (Version 2)
Quarter: 2018Q3

REPORT INFORMATION
  Report Type: Spontaneous
  Country: JP (occurrence: JP)
  Receive Date: 20171211
  Receipt Date: 20180808
  Transmission Date: 20181010
  Serious: Yes (Other)
  Sender: FDA-Public Use
  Company Number: JP-OTSUKA-BJ20111387

PATIENT
  Age: 0 Day
  Sex: Male
  Weight: 2.39 kg

DRUGS (2)
  1. MENTAX [Concomitant]
     Active Substance: BUTENAFINE HYDROCHLORIDE
     Indication: PRODUCT USED FOR UNKNOWN INDICATION
     Dosage: UNK, QS
     Route: 064
  2. ABILIFY [Suspect]
     Active Substance: ARIPIPRAZOLE
     Indication: PRODUCT USED FOR UNKNOWN INDICATION
     Dosage: 6 MG, QD
     Route: 064
     Dates: end: 20110111

REACTIONS (4)
  - Umbilical cord around neck [Unknown]
  - Foetal exposure during pregnancy [Unknown]
  - Foetal heart rate disorder [Recovered/Resolved]
  - Low birth weight baby [Recovering/Resolving]

NARRATIVE: CASE EVENT DATE: 20110111
